FAERS Safety Report 19677723 (Version 1)
Quarter: 2021Q3

REPORT INFORMATION
  Report Type: Spontaneous
  Country: US (occurrence: US)
  Receive Date: 20210809
  Receipt Date: 20210809
  Transmission Date: 20211014
  Serious: No
  Sender: FDA-Public Use
  Company Number: US-JNJFOC-20210765550

PATIENT
  Sex: Male

DRUGS (1)
  1. HALDOL [Suspect]
     Active Substance: HALOPERIDOL
     Indication: PRODUCT USED FOR UNKNOWN INDICATION
     Route: 065
     Dates: start: 201911

REACTIONS (10)
  - Decreased appetite [Unknown]
  - Discomfort [Unknown]
  - Blood glucose increased [Unknown]
  - Oedema [Unknown]
  - Dyspnoea [Unknown]
  - Skin disorder [Unknown]
  - Weight increased [Unknown]
  - Pruritus [Unknown]
  - Hypokinesia [Unknown]
  - Swelling [Unknown]
